FAERS Safety Report 4988635-9 (Version None)
Quarter: 2006Q2

REPORT INFORMATION
  Report Type: 
  Country: None (occurrence: None)
  Receive Date: 20060426
  Receipt Date: 20060410
  Transmission Date: 20061013
  Serious: Yes (Hospitalization)
  Sender: FDA-Public Use
  Company Number: JP200604000843

PATIENT
  Age: 4 Year
  Sex: Male

DRUGS (3)
  1. CEFACLOR [Suspect]
     Indication: PHARYNGITIS
     Dosage: ORAL
     Route: 048
  2. SULTAMICILLIN [Concomitant]
  3. PIPERACILLIN [Concomitant]

REACTIONS (4)
  - ACUTE TONSILLITIS [None]
  - DRUG INEFFECTIVE [None]
  - ECTHYMA [None]
  - STREPTOCOCCAL INFECTION [None]
